FAERS Safety Report 23637500 (Version 2)
Quarter: 2024Q2

REPORT INFORMATION
  Report Type: Spontaneous
  Country: US (occurrence: US)
  Receive Date: 20240315
  Receipt Date: 20240410
  Transmission Date: 20240716
  Serious: Yes (Other)
  Sender: FDA-Public Use
  Company Number: US-SA-SAC20240314000698

PATIENT
  Age: 58 Year
  Sex: Female

DRUGS (2)
  1. DUPIXENT [Suspect]
     Active Substance: DUPILUMAB
     Indication: Asthma
     Dosage: 300 MG, QOW
     Route: 058
     Dates: start: 20220204, end: 2022
  2. DUPIXENT [Suspect]
     Active Substance: DUPILUMAB
     Dosage: 300 MG, QOW
     Route: 058
     Dates: start: 20220309

REACTIONS (6)
  - Pneumonia [Not Recovered/Not Resolved]
  - Aspiration [Unknown]
  - Anaphylactic reaction [Unknown]
  - Pulmonary pain [Unknown]
  - Gastrooesophageal reflux disease [Unknown]
  - Asthma [Unknown]

NARRATIVE: CASE EVENT DATE: 20240101
